FAERS Safety Report 4704105-7 (Version None)
Quarter: 2005Q2

REPORT INFORMATION
  Report Type: 
  Country: None (occurrence: None)
  Receive Date: 20050629
  Receipt Date: 20050614
  Transmission Date: 20051028
  Serious: No
  Sender: FDA-Public Use
  Company Number: 11528

PATIENT
  Age: 74 Year
  Sex: Female

DRUGS (11)
  1. DOXORUBICIN HCL [Suspect]
     Indication: BREAST CANCER
     Dosage: 300 MG/M2 TOTAL
  2. VINCRISTINE [Suspect]
     Indication: BREAST CANCER
     Dosage: 3.6 MG/M2 TOTAL
  3. METHOTREXATE [Suspect]
     Indication: BREAST CANCER
     Dosage: 90 MG/M2 TOTAL
  4. FLUOROURACIL [Concomitant]
     Indication: BREAST CANCER
     Dosage: 5600 MG/M2 TOTAL
  5. MITOXANTRONE [Suspect]
     Indication: BREAST CANCER
     Dosage: 30 MG/M2 TOTAL
  6. VINORELBINE [Suspect]
     Indication: BREAST CANCER
     Dosage: 150 MG/M2 TOTAL
  7. ETOPOSIDE [Suspect]
     Indication: BREAST CANCER
     Dosage: 16225 MG/M2 TOTAL
  8. MITOMYCIN [Suspect]
     Indication: BREAST CANCER
     Dosage: 21 MG/M2 TOTAL
  9. PACLITAXEL [Suspect]
     Indication: BREAST CANCER
     Dosage: 480 MG/M2 TOTAL
  10. CYCLOPHOSPHAMIDE [Suspect]
     Indication: BREAST CANCER
     Dosage: 3300 MG/M2 TOTAL
  11. ELLIPTICINE [Suspect]
     Indication: BREAST CANCER
     Dosage: 2400 MG/M2 TOTAL

REACTIONS (1)
  - ACUTE PROMYELOCYTIC LEUKAEMIA [None]
